FAERS Safety Report 17593080 (Version 1)
Quarter: 2020Q1

REPORT INFORMATION
  Report Type: Report from Study
  Country: US (occurrence: US)
  Receive Date: 20200327
  Receipt Date: 20200327
  Transmission Date: 20200409
  Serious: Yes (Death)
  Sender: FDA-Public Use
  Company Number: US-TAIHO ONCOLOGY  INC-EU-2020-00984

PATIENT
  Sex: Female

DRUGS (11)
  1. LONSURF [Suspect]
     Active Substance: TIPIRACIL HYDROCHLORIDE\TRIFLURIDINE
     Indication: THYROID CANCER
     Dosage: CYCLE UNKNOWN
     Route: 048
  2. LEVOTHYROXINE. [Concomitant]
     Active Substance: LEVOTHYROXINE
  3. SPIRONOLACTONE. [Concomitant]
     Active Substance: SPIRONOLACTONE
  4. FUROSEMIDE. [Concomitant]
     Active Substance: FUROSEMIDE
  5. FAMOTIDINE. [Concomitant]
     Active Substance: FAMOTIDINE
  6. PREDNISONE. [Concomitant]
     Active Substance: PREDNISONE
  7. POTASSIUM CHLORIDE. [Concomitant]
     Active Substance: POTASSIUM CHLORIDE
  8. NYSTATIN. [Concomitant]
     Active Substance: NYSTATIN
  9. DOXYCYLCLINE HYCLATE [Concomitant]
  10. ONDANSETRON [Concomitant]
     Active Substance: ONDANSETRON
  11. BENZONATATE. [Concomitant]
     Active Substance: BENZONATATE

REACTIONS (2)
  - Intentional product use issue [Unknown]
  - Death [Fatal]
